FAERS Safety Report 9898117 (Version 1)
Quarter: 2014Q1

REPORT INFORMATION
  Report Type: Spontaneous
  Country: DE (occurrence: DE)
  Receive Date: 20140214
  Receipt Date: 20140214
  Transmission Date: 20141002
  Serious: Yes (Other)
  Sender: FDA-Public Use
  Company Number: DE-ASTRAZENECA-2014SE09607

PATIENT
  Age: 84 Year
  Sex: Female

DRUGS (4)
  1. ATACAND PLUS [Suspect]
     Indication: ESSENTIAL HYPERTENSION
     Dosage: 16+12.5MG
     Route: 048
  2. TAMBOCOR [Concomitant]
     Dosage: 1 TBL.
  3. ADUMBRAN [Concomitant]
     Dosage: IF NEEDED
  4. IBUFLAM [Concomitant]

REACTIONS (8)
  - Blood pressure systolic increased [Unknown]
  - Headache [Unknown]
  - Arrhythmia [Unknown]
  - Nervousness [Unknown]
  - Arthralgia [Unknown]
  - Fall [Unknown]
  - Dizziness [Unknown]
  - Drug ineffective [Unknown]
